FAERS Safety Report 7366759-9 (Version None)
Quarter: 2011Q1

REPORT INFORMATION
  Report Type: 
  Country: None (occurrence: None)
  Receive Date: 20110322
  Receipt Date: 20110316
  Transmission Date: 20110831
  Serious: Yes (Other)
  Sender: FDA-Public Use
  Company Number: US-PFIZER INC-2011058679

PATIENT
  Sex: Female
  Weight: 58.957 kg

DRUGS (7)
  1. HYDROMORPHONE [Concomitant]
     Dosage: 1 MG ONCE A DAY
  2. XALATAN [Suspect]
     Indication: GLAUCOMA
     Dosage: ONE DROP IN EACH EYE ONCE A DAY
     Route: 047
     Dates: start: 20021201, end: 20080101
  3. PROTONIX [Concomitant]
     Dosage: 40 MG, UNK
  4. VALIUM [Concomitant]
     Dosage: ONCE A DAY
  5. PREMARIN [Concomitant]
     Dosage: UNK
  6. XALATAN [Suspect]
     Dosage: ONE DROP IN EACH EYE ONCE A DAY
  7. NORCO [Concomitant]
     Dosage: 10/325 MG, THREE TO FOUR TIMES A DAY

REACTIONS (4)
  - BACK DISORDER [None]
  - SLEEP DISORDER [None]
  - BODY HEIGHT DECREASED [None]
  - WEIGHT INCREASED [None]
